FAERS Safety Report 23540138 (Version 1)
Quarter: 2024Q1

REPORT INFORMATION
  Report Type: Spontaneous
  Country: US (occurrence: US)
  Receive Date: 20240219
  Receipt Date: 20240219
  Transmission Date: 20240409
  Serious: No
  Sender: FDA-Public Use
  Company Number: US-SANDOZ-SDZ2024US015009

PATIENT
  Sex: Female
  Weight: 81 kg

DRUGS (3)
  1. AZITHROMYCIN [Suspect]
     Active Substance: AZITHROMYCIN
     Indication: Oropharyngeal pain
     Dosage: UNK
     Route: 065
     Dates: start: 20240129
  2. METHYLPREDNISOLONE [Suspect]
     Active Substance: METHYLPREDNISOLONE
     Indication: Cough
     Dosage: 4 MG
     Route: 048
     Dates: start: 20240129
  3. PROMETHAZINE [Suspect]
     Active Substance: PROMETHAZINE HYDROCHLORIDE
     Indication: Oropharyngeal pain
     Dosage: UNK
     Route: 065
     Dates: start: 20240129

REACTIONS (4)
  - Pharyngeal hypoaesthesia [Unknown]
  - Reaction to excipient [Unknown]
  - Dizziness [Unknown]
  - Off label use [Unknown]
